FAERS Safety Report 9305434 (Version 2)
Quarter: 2013Q2

REPORT INFORMATION
  Report Type: Spontaneous
  Country: None (occurrence: None)
  Receive Date: 20130523
  Receipt Date: 20130614
  Transmission Date: 20140414
  Serious: Yes (Hospitalization, Other)
  Sender: FDA-Public Use
  Company Number: PS-AMGEN-PSESP2013036074

PATIENT
  Age: 30 Year
  Sex: Male

DRUGS (1)
  1. ENBREL [Suspect]
     Indication: ANKYLOSING SPONDYLITIS
     Dosage: 25 MG, 2X/WEEK
     Route: 058
     Dates: start: 201106, end: 2013

REACTIONS (3)
  - Fibrosis [Recovering/Resolving]
  - Dyspnoea [Recovering/Resolving]
  - Lower respiratory tract infection [Recovering/Resolving]
